FAERS Safety Report 6091534-5 (Version None)
Quarter: 2009Q1

REPORT INFORMATION
  Report Type: 
  Country: None (occurrence: None)
  Receive Date: 20090225
  Receipt Date: 20090218
  Transmission Date: 20090719
  Serious: Yes (Hospitalization, Other)
  Sender: FDA-Public Use
  Company Number: PHHO2006CH09297

PATIENT
  Sex: Female
  Weight: 66 kg

DRUGS (7)
  1. RAD 666 RAD+TAB [Suspect]
     Indication: RENAL TRANSPLANT
     Dosage: 2.25 MG, BID
     Route: 048
  2. RAD 666 RAD+TAB [Suspect]
     Dosage: 0.75 MG, BID
     Route: 048
  3. MYFORTIC [Suspect]
     Indication: RENAL TRANSPLANT
     Dosage: 1420 MG / DAY
     Route: 048
     Dates: start: 20060309, end: 20060328
  4. NEORAL [Suspect]
     Indication: RENAL TRANSPLANT
     Dosage: NOT REPORTED
     Route: 048
     Dates: start: 20060309, end: 20060823
  5. PREDNISONE [Suspect]
  6. CYMEVENE [Suspect]
     Indication: CYTOMEGALOVIRUS INFECTION
  7. VALGANCICLOVIR HCL [Suspect]

REACTIONS (19)
  - C-REACTIVE PROTEIN INCREASED [None]
  - CONTUSION [None]
  - CYSTITIS [None]
  - CYTOMEGALOVIRUS INFECTION [None]
  - DEMYELINATION [None]
  - DIABETES MELLITUS [None]
  - FALL [None]
  - FATIGUE [None]
  - GENERAL PHYSICAL HEALTH DETERIORATION [None]
  - HYPERVENTILATION [None]
  - KETONURIA [None]
  - LACTIC ACIDOSIS [None]
  - LUNG DISORDER [None]
  - NEUTROPENIA [None]
  - NORMOCHROMIC NORMOCYTIC ANAEMIA [None]
  - PERONEAL MUSCULAR ATROPHY [None]
  - PYREXIA [None]
  - RESPIRATORY ALKALOSIS [None]
  - TROPONIN INCREASED [None]
